FAERS Safety Report 13726318 (Version 1)
Quarter: 2017Q3

REPORT INFORMATION
  Report Type: Spontaneous
  Country: TW (occurrence: TW)
  Receive Date: 20170706
  Receipt Date: 20170706
  Transmission Date: 20171127
  Serious: Yes (Life-Threatening)
  Sender: FDA-Public Use
  Company Number: TW-BAYER-2017-125260

PATIENT
  Age: 82 Year
  Sex: Female

DRUGS (8)
  1. AMLODIPINE [Concomitant]
     Active Substance: AMLODIPINE BESYLATE
     Dosage: UNK
  2. SENNOSIDE [Concomitant]
     Active Substance: SENNOSIDES
     Dosage: UNK
  3. ISOSORB MONO [Concomitant]
     Active Substance: ISOSORBIDE MONONITRATE
     Dosage: UNK
  4. GLUCOBAY [Suspect]
     Active Substance: ACARBOSE
     Dosage: UNK
  5. ASPIRIN. [Concomitant]
     Active Substance: ASPIRIN
     Dosage: UNK
  6. REPAGLINIDE. [Suspect]
     Active Substance: REPAGLINIDE
     Dosage: 1 MG, TID
  7. ROSIGLITAZONE [Concomitant]
     Active Substance: ROSIGLITAZONE
     Dosage: UNK
  8. FUROSEMIDE. [Concomitant]
     Active Substance: FUROSEMIDE
     Dosage: UNK

REACTIONS (1)
  - Hyperglycaemia [Unknown]
